FAERS Safety Report 21491587 (Version 1)
Quarter: 2022Q4

REPORT INFORMATION
  Report Type: Spontaneous
  Country: CN (occurrence: CN)
  Receive Date: 20221021
  Receipt Date: 20221021
  Transmission Date: 20230113
  Serious: Yes (Other)
  Sender: FDA-Public Use
  Company Number: CN-SUN PHARMACEUTICAL INDUSTRIES LTD-2022R1-359985

PATIENT
  Age: 45 Year
  Sex: Female

DRUGS (2)
  1. CISPLATIN [Suspect]
     Active Substance: CISPLATIN
     Indication: Paraganglion neoplasm malignant
     Dosage: 75 MG/M.SQ
     Route: 033
  2. DOXORUBICIN [Suspect]
     Active Substance: DOXORUBICIN
     Indication: Paraganglion neoplasm malignant
     Dosage: 25 MG/M.SQ
     Route: 042

REACTIONS (1)
  - Disease progression [Unknown]
